FAERS Safety Report 14069730 (Version 2)
Quarter: 2017Q4

REPORT INFORMATION
  Report Type: Spontaneous
  Country: PT (occurrence: PT)
  Receive Date: 20171010
  Receipt Date: 20171013
  Transmission Date: 20180321
  Serious: Yes (Other)
  Sender: FDA-Public Use
  Company Number: PT-ALIMERA SCIENCES LIMITED-PT-FL-2017-003772

PATIENT

DRUGS (3)
  1. ILUVIEN [Suspect]
     Active Substance: FLUOCINOLONE ACETONIDE
     Indication: DIABETIC RETINAL OEDEMA
     Dosage: 0.25 ?G, RIGHT EYE
     Route: 031
     Dates: start: 201509
  2. TIMOLOL. [Concomitant]
     Active Substance: TIMOLOL
     Dosage: RIGHT EYE
     Dates: start: 201603
  3. TIMOLOL. [Concomitant]
     Active Substance: TIMOLOL
     Indication: INTRAOCULAR PRESSURE INCREASED
     Dosage: RIGHT EYE
     Dates: start: 201204, end: 201206

REACTIONS (5)
  - Vitreous haemorrhage [Recovered/Resolved]
  - Vitreous detachment [Recovered/Resolved]
  - Ocular hypertension [Unknown]
  - Trabeculoplasty [Unknown]
  - Retinal laser coagulation [Unknown]
